FAERS Safety Report 10055834 (Version 4)
Quarter: 2014Q2

REPORT INFORMATION
  Report Type: Spontaneous
  Country: US (occurrence: US)
  Receive Date: 20140403
  Receipt Date: 20140428
  Transmission Date: 20141212
  Serious: Yes (Life-Threatening)
  Sender: FDA-Public Use
  Company Number: US-JNJFOC-20140105985

PATIENT
  Sex: Female

DRUGS (1)
  1. ORTHO NOVUM 1/35 [Suspect]
     Indication: CONTRACEPTION
     Route: 048

REACTIONS (3)
  - Suicide attempt [Unknown]
  - Sexual dysfunction [Unknown]
  - Mental disorder [Not Recovered/Not Resolved]
